FAERS Safety Report 12315827 (Version 5)
Quarter: 2016Q2

REPORT INFORMATION
  Report Type: Spontaneous
  Country: JP (occurrence: JP)
  Receive Date: 20160428
  Receipt Date: 20160615
  Transmission Date: 20160815
  Serious: Yes (Hospitalization, Other)
  Sender: FDA-Public Use
  Company Number: JP-MDT-ADR-2016-00776

PATIENT
  Age: 69 Year
  Sex: Male
  Weight: 56 kg

DRUGS (3)
  1. GABALON [Suspect]
     Active Substance: BACLOFEN
     Dosage: 25 MCG
     Route: 037
     Dates: start: 20091112
  2. GABALON [Suspect]
     Active Substance: BACLOFEN
     Dosage: 65 MCG
     Route: 037
     Dates: start: 20091112
  3. GABALON [Suspect]
     Active Substance: BACLOFEN
     Dosage: 50 MCG
     Route: 037

REACTIONS (2)
  - Abdominal discomfort [Recovered/Resolved]
  - Medical device site fibrosis [Recovered/Resolved]
